FAERS Safety Report 9438117 (Version 2)
Quarter: 2014Q1

REPORT INFORMATION
  Report Type: Spontaneous
  Country: US (occurrence: US)
  Receive Date: 20130802
  Receipt Date: 20140122
  Transmission Date: 20141002
  Serious: Yes (Hospitalization)
  Sender: FDA-Public Use
  Company Number: US-BAYER-2013-093450

PATIENT
  Sex: Female
  Weight: 96.15 kg

DRUGS (1)
  1. MIRENA [Suspect]
     Indication: CONTRACEPTION
     Dosage: 20 MCG/24HR, CONT
     Route: 015
     Dates: start: 201002, end: 20111228

REACTIONS (5)
  - Grand mal convulsion [None]
  - Uterine enlargement [None]
  - Genital haemorrhage [None]
  - Migraine [None]
  - Pain [None]
